FAERS Safety Report 5370693-3 (Version None)
Quarter: 2007Q2

REPORT INFORMATION
  Report Type: 
  Country: None (occurrence: None)
  Receive Date: 20070618
  Receipt Date: 20060817
  Transmission Date: 20071010
  Serious: Yes (Other)
  Sender: FDA-Public Use
  Company Number: PHEH2006US10594

PATIENT
  Age: 75 Year
  Sex: Male

DRUGS (6)
  1. GLEEVEC [Suspect]
     Indication: GASTROINTESTINAL STROMAL TUMOUR
     Dosage: 100 MG, Q72H, ORAL; 400 MG, QD, ORAL
     Route: 048
     Dates: end: 20020101
  2. GLEEVEC [Suspect]
     Indication: GASTROINTESTINAL STROMAL TUMOUR
     Dosage: 100 MG, Q72H, ORAL; 400 MG, QD, ORAL
     Route: 048
     Dates: start: 20020101
  3. COREG [Concomitant]
  4. LASIX [Concomitant]
  5. GLIPIZIDE [Concomitant]
  6. AVANDIA [Concomitant]

REACTIONS (5)
  - BLOOD CREATININE INCREASED [None]
  - CARDIAC FAILURE [None]
  - CARDIOMEGALY [None]
  - DYSPNOEA [None]
  - EJECTION FRACTION DECREASED [None]
